FAERS Safety Report 8839331 (Version 1)
Quarter: 2012Q4

REPORT INFORMATION
  Report Type: 
  Country: US (occurrence: US)
  Receive Date: 20121015
  Receipt Date: 20121015
  Transmission Date: 20130627
  Serious: Yes (Other)
  Sender: FDA-Public Use
  Company Number: US-BAYER-2012-107444

PATIENT

DRUGS (1)
  1. GADAVIST [Suspect]
     Dosage: UNK

REACTIONS (1)
  - Contrast media reaction [None]
